FAERS Safety Report 5702230-5 (Version None)
Quarter: 2008Q2

REPORT INFORMATION
  Report Type: 
  Country: None (occurrence: None)
  Receive Date: 20080411
  Receipt Date: 20080331
  Transmission Date: 20081010
  Serious: Yes (Other)
  Sender: FDA-Public Use
  Company Number: US-ROCHE-555927

PATIENT
  Age: 74 Year
  Sex: Female

DRUGS (9)
  1. KLONOPIN [Suspect]
     Indication: AGORAPHOBIA
     Dosage: OTHER INDICATION: PANIC ATTACK
     Route: 065
     Dates: start: 19880301
  2. KLONOPIN [Suspect]
     Route: 065
  3. CLONAZEPAM [Suspect]
     Indication: AGORAPHOBIA
     Dosage: OTHER INDICATION: PANIC ATTACK
     Route: 065
  4. NITROGLYCERIN [Concomitant]
  5. INDERAL [Concomitant]
  6. HYDROCHLOROTHIAZIDE [Concomitant]
  7. ANTIVERT [Concomitant]
     Indication: DIZZINESS
  8. SYNTHROID [Concomitant]
  9. PEPCID [Concomitant]

REACTIONS (5)
  - ABDOMINAL PAIN UPPER [None]
  - ARTERIAL OCCLUSIVE DISEASE [None]
  - CEREBROVASCULAR ACCIDENT [None]
  - MYOCARDIAL INFARCTION [None]
  - TRANSIENT ISCHAEMIC ATTACK [None]
